FAERS Safety Report 9332872 (Version 2)
Quarter: 2013Q2

REPORT INFORMATION
  Report Type: Spontaneous
  Country: IT (occurrence: IT)
  Receive Date: 20130606
  Receipt Date: 20130620
  Transmission Date: 20140414
  Serious: Yes (Other)
  Sender: FDA-Public Use
  Company Number: IT-BRISTOL-MYERS SQUIBB COMPANY-18969436

PATIENT
  Age: 70 Year
  Sex: Male

DRUGS (6)
  1. COUMADIN TABS 5 MG [Suspect]
     Indication: ATRIAL FIBRILLATION
     Dosage: DOSE REDUCTION FROM 40MG/WEEKLY TO 38.75 MG/WEEKLY
     Route: 048
     Dates: start: 20030530, end: 20130528
  2. AMOXICILLIN + CLAVULANIC ACID [Suspect]
     Indication: FRACTURE
     Dosage: AMOXICILLIN-CLAVULANIC ACID : 875+125 MG TAB
     Route: 048
     Dates: start: 20130504, end: 20130509
  3. SOTALOL [Concomitant]
  4. SIMVASTATIN [Concomitant]
  5. RYTMOBETA [Concomitant]
     Dosage: TABS
  6. LOSAZID [Concomitant]
     Dosage: 1DF:100+25 MG TAB

REACTIONS (2)
  - Fracture [Unknown]
  - International normalised ratio increased [Recovered/Resolved]
